FAERS Safety Report 7067371-1 (Version None)
Quarter: 2010Q4

REPORT INFORMATION
  Report Type: 
  Country: None (occurrence: None)
  Receive Date: 20101028
  Receipt Date: 20101019
  Transmission Date: 20110411
  Serious: Yes (Hospitalization, Other)
  Sender: FDA-Public Use
  Company Number: CA-ABBOTT-10P-028-0652589-00

PATIENT
  Sex: Male
  Weight: 47.67 kg

DRUGS (4)
  1. HUMIRA [Suspect]
     Indication: CROHN'S DISEASE
     Route: 058
     Dates: start: 20090917
  2. HUMIRA [Suspect]
     Dosage: WEEKLY
  3. METHOTREXATE [Concomitant]
     Indication: CROHN'S DISEASE
     Dosage: 3 PILLS WEEKLY
     Route: 048
  4. FOLIC ACID [Concomitant]
     Indication: CROHN'S DISEASE

REACTIONS (5)
  - ABDOMINAL PAIN [None]
  - ANAL FISTULA [None]
  - BACK PAIN [None]
  - CROHN'S DISEASE [None]
  - PELVIC ABSCESS [None]
